FAERS Safety Report 25183381 (Version 1)
Quarter: 2025Q2

REPORT INFORMATION
  Report Type: Other
  Country: US (occurrence: US)
  Receive Date: 20250410
  Receipt Date: 20250410
  Transmission Date: 20250717
  Serious: Yes (Death, Hospitalization, Other)
  Sender: ALVOGEN
  Company Number: US-ALVOGEN-2025097402

PATIENT
  Age: 32 Year
  Sex: Female

DRUGS (4)
  1. GABAPENTIN [Suspect]
     Active Substance: GABAPENTIN
     Indication: Suicide attempt
     Route: 065
  2. OXYCODONE [Suspect]
     Active Substance: OXYCODONE
     Indication: Suicide attempt
     Route: 065
  3. BUPROPION [Suspect]
     Active Substance: BUPROPION
     Indication: Suicide attempt
     Route: 065
  4. ALPRAZOLAM [Suspect]
     Active Substance: ALPRAZOLAM
     Indication: Suicide attempt
     Route: 065

REACTIONS (8)
  - Completed suicide [Fatal]
  - Cardiac arrest [Fatal]
  - Ventricular fibrillation [Unknown]
  - Pneumonia [Unknown]
  - Injury [Unknown]
  - Skin abrasion [Unknown]
  - Contusion [Unknown]
  - Maternal exposure during pregnancy [Unknown]
